FAERS Safety Report 10371612 (Version 1)
Quarter: 2014Q3

REPORT INFORMATION
  Report Type: Spontaneous
  Country: US (occurrence: US)
  Receive Date: 20140808
  Receipt Date: 20140808
  Transmission Date: 20150326
  Serious: Yes (Death)
  Sender: FDA-Public Use
  Company Number: US-ACTELION-A-US2014-102942

PATIENT
  Age: 5 Year
  Sex: Female

DRUGS (5)
  1. TRACLEER [Suspect]
     Active Substance: BOSENTAN\BOSENTAN MONOHYDRATE
     Indication: PULMONARY ARTERIAL HYPERTENSION
     Dosage: 5 MG, BID
     Route: 048
     Dates: start: 201006, end: 20110210
  2. TYVASO [Concomitant]
     Active Substance: TREPROSTINIL
     Dosage: 18.75 MG, UNK
     Dates: start: 20110311
  3. TRACLEER [Suspect]
     Active Substance: BOSENTAN\BOSENTAN MONOHYDRATE
     Dosage: 12.5 MG, BID
     Route: 048
     Dates: start: 20110211, end: 20140725
  4. TYVASO [Concomitant]
     Active Substance: TREPROSTINIL
     Dosage: 31.25 UNK, UNK
     Dates: start: 20130507
  5. SILDENAFIL [Concomitant]
     Active Substance: SILDENAFIL
     Dosage: 15.6 MG, UNK
     Dates: start: 20110225

REACTIONS (3)
  - Cardio-respiratory arrest [Fatal]
  - Disease complication [Fatal]
  - Pulmonary arterial hypertension [Fatal]

NARRATIVE: CASE EVENT DATE: 20140725
